FAERS Safety Report 15491379 (Version 10)
Quarter: 2023Q4

REPORT INFORMATION
  Report Type: Other
  Country: CA (occurrence: None)
  Receive Date: 20181012
  Receipt Date: 20231209
  Transmission Date: 20240109
  Serious: Yes (Other)
  Sender: FDA-Public Use
  Company Number: CA-ROCHE-2124762

PATIENT
  Age: 47 Year
  Sex: Female

DRUGS (15)
  1. OCREVUS [Suspect]
     Active Substance: OCRELIZUMAB
     Indication: Relapsing-remitting multiple sclerosis
     Route: 042
     Dates: start: 20180509
  2. OCREVUS [Suspect]
     Active Substance: OCRELIZUMAB
     Dosage: SECOND INFUSION,
     Route: 042
     Dates: start: 20180523
  3. OCREVUS [Suspect]
     Active Substance: OCRELIZUMAB
     Dosage: MAINTAINANCE
     Route: 042
     Dates: start: 20181115
  4. GABAPENTIN [Concomitant]
     Active Substance: GABAPENTIN
     Indication: Pain
     Dosage: SHE TOOK MANY MEDICATIONS BUT THIS ONE AT LEAST 10 YEARS
     Route: 048
  5. GABAPENTIN [Concomitant]
     Active Substance: GABAPENTIN
     Dosage: 400 MG AND 800 MG THREE TIMES DAILY
  6. SYNTHROID [Concomitant]
     Active Substance: LEVOTHYROXINE SODIUM
     Dosage: INDICATION: THYROID?ONGOING - YES, 0.1 MG ONCE DAILY?MORNING MORE THAN 10 YEARS
     Route: 048
  7. TRAZODONE [Concomitant]
     Active Substance: TRAZODONE HYDROCHLORIDE
     Indication: Depression
     Dosage: INDICATION: TO SLEEP?AT NIGHT SINCE LONG TIME
     Route: 048
  8. ZOPICLONE [Concomitant]
     Active Substance: ZOPICLONE
     Dosage: 7.5 MG ONCE DAILY,?ONCE AT NIGHT TO HELP SLEEPING LONG TIME AGO
     Route: 048
  9. CELECOXIB [Concomitant]
     Active Substance: CELECOXIB
     Indication: Carpal tunnel syndrome
     Route: 048
  10. DEXILANT [Concomitant]
     Active Substance: DEXLANSOPRAZOLE
     Route: 048
  11. AMLODIPINE BESYLATE [Concomitant]
     Active Substance: AMLODIPINE BESYLATE
     Indication: Blood pressure measurement
     Dosage: ONGOING - YES?(CANNOT REMEMBER WHEN BUT AT LEAST 2 YEARS)
     Route: 048
  12. OLMESARTAN [Concomitant]
     Active Substance: OLMESARTAN
     Indication: Blood pressure measurement
     Dosage: ONGOING - YES?CANNOT REMEMBER WHEN BUT AT LEAST 2 YEARS
     Route: 048
  13. ROSUVASTATIN [Concomitant]
     Active Substance: ROSUVASTATIN
     Indication: Blood cholesterol
     Dosage: ONGOING -YES?CANNOT REMEMBER WHEN BUT AT LEAST 2 YEARS
     Route: 048
  14. PREGABALIN [Concomitant]
     Active Substance: PREGABALIN
     Indication: Pain
     Dosage: SINCE LONG TIME
     Route: 048
  15. CARBAMAZEPINE [Concomitant]
     Active Substance: CARBAMAZEPINE
     Indication: Pain
     Dosage: ONGOING - YES?SINCE LONG TIME
     Route: 048

REACTIONS (13)
  - Lichen planus [Not Recovered/Not Resolved]
  - Infusion related reaction [Not Recovered/Not Resolved]
  - Fatigue [Not Recovered/Not Resolved]
  - Conjunctivitis [Recovering/Resolving]
  - Stomatitis [Recovering/Resolving]
  - Toothache [Not Recovered/Not Resolved]
  - Nasopharyngitis [Recovering/Resolving]
  - Asthenia [Unknown]
  - Fatigue [Not Recovered/Not Resolved]
  - Mood altered [Not Recovered/Not Resolved]
  - Malaise [Unknown]
  - Tremor [Unknown]
  - Ligament sprain [Not Recovered/Not Resolved]

NARRATIVE: CASE EVENT DATE: 20180509
